FAERS Safety Report 24454162 (Version 2)
Quarter: 2024Q4

REPORT INFORMATION
  Report Type: Report from Study
  Country: US (occurrence: US)
  Receive Date: 20241017
  Receipt Date: 20241018
  Transmission Date: 20250114
  Serious: No
  Sender: ROCHE
  Company Number: US-ROCHE-3434332

PATIENT
  Age: 73 Year
  Sex: Male

DRUGS (17)
  1. RITUXAN [Suspect]
     Active Substance: RITUXIMAB
     Indication: Granulomatosis with polyangiitis
     Dosage: ON DAY 1 AND DAY 15 THEN 500 MG EVERY 6 MONTHS
     Route: 041
  2. PREDNISONE [Concomitant]
     Active Substance: PREDNISONE
  3. VOLTAREN [Concomitant]
     Active Substance: DICLOFENAC SODIUM
  4. CYCLOBENZAPRINE [Concomitant]
     Active Substance: CYCLOBENZAPRINE
  5. DOXAZOSIN [Concomitant]
     Active Substance: DOXAZOSIN\DOXAZOSIN MESYLATE
  6. ELIQUIS [Concomitant]
     Active Substance: APIXABAN
  7. FUROSEMIDE [Concomitant]
     Active Substance: FUROSEMIDE
  8. METOPROLOL [Concomitant]
     Active Substance: METOPROLOL
  9. MORPHINE [Concomitant]
     Active Substance: MORPHINE
  10. MS CONTIN [Concomitant]
     Active Substance: MORPHINE SULFATE
  11. POTASSIUM [Concomitant]
     Active Substance: POTASSIUM
  12. PRAVASTATIN [Concomitant]
     Active Substance: PRAVASTATIN
  13. PRIMIDONE [Concomitant]
     Active Substance: PRIMIDONE
  14. PROAIR HFA [Concomitant]
     Active Substance: ALBUTEROL SULFATE
  15. TESTOSTERONE [Concomitant]
     Active Substance: TESTOSTERONE
  16. VALSARTAN [Concomitant]
     Active Substance: VALSARTAN
  17. VITAMIN D3 [Concomitant]
     Active Substance: CHOLECALCIFEROL

REACTIONS (2)
  - Off label use [Unknown]
  - No adverse event [Unknown]
